FAERS Safety Report 8716240 (Version 3)
Quarter: 2013Q4

REPORT INFORMATION
  Report Type: Spontaneous
  Country: JP (occurrence: JP)
  Receive Date: 20120810
  Receipt Date: 20131031
  Transmission Date: 20140711
  Serious: Yes (Hospitalization)
  Sender: FDA-Public Use
  Company Number: JP-009507513-1208JPN001643

PATIENT
  Age: 36 Year
  Sex: Female
  Weight: 51 kg

DRUGS (6)
  1. GASTER D [Suspect]
     Indication: PROPHYLAXIS AGAINST GASTROINTESTINAL ULCER
     Dosage: 20 MG, BID
     Route: 048
     Dates: start: 20120705, end: 20120705
  2. GENINAX [Suspect]
     Indication: LYMPHADENITIS
     Dosage: 400 MG, QD
     Route: 048
     Dates: start: 20120618, end: 20120624
  3. GENINAX [Suspect]
     Dosage: 400 MG, QD
     Route: 048
     Dates: start: 20120705, end: 20120705
  4. FLOMOX [Concomitant]
     Indication: LYMPHADENITIS
     Dosage: UNK
     Route: 048
     Dates: start: 20120625, end: 20120701
  5. PREDNISOLONE [Concomitant]
     Indication: LYMPHADENITIS
     Dosage: UNK
     Route: 048
     Dates: start: 20120625, end: 20120705
  6. LOXONIN [Concomitant]
     Dosage: UNK
     Route: 048
     Dates: start: 20120625, end: 20120705

REACTIONS (3)
  - Eczema [Recovering/Resolving]
  - Stomatitis [Recovering/Resolving]
  - Off label use [Unknown]
